FAERS Safety Report 4975220-8 (Version None)
Quarter: 2006Q2

REPORT INFORMATION
  Report Type: 
  Country: None (occurrence: None)
  Receive Date: 20060418
  Receipt Date: 20060407
  Transmission Date: 20061013
  Serious: Yes (Other)
  Sender: FDA-Public Use
  Company Number: US-AVENTIS-200613878GDDC

PATIENT
  Age: 68 Year
  Sex: Female
  Weight: 54 kg

DRUGS (8)
  1. TAXOTERE [Suspect]
     Indication: ADENOCARCINOMA
     Route: 042
     Dates: end: 20060329
  2. TAXOTERE [Suspect]
     Indication: RETROPERITONEAL CANCER
     Route: 042
     Dates: end: 20060329
  3. OXALIPLATIN [Suspect]
     Indication: ADENOCARCINOMA
     Dates: end: 20060329
  4. OXALIPLATIN [Suspect]
     Indication: RETROPERITONEAL CANCER
     Dates: end: 20060329
  5. FLUOROURACIL [Suspect]
     Indication: ADENOCARCINOMA
     Dosage: DOSE: UNK
     Dates: end: 20060329
  6. FLUOROURACIL [Suspect]
     Indication: RETROPERITONEAL CANCER
     Dosage: DOSE: UNK
     Dates: end: 20060329
  7. TYLENOL W/ CODEINE [Concomitant]
     Dosage: DOSE: 300-30 MG 1 TABLET
     Route: 048
     Dates: start: 20051223
  8. XANAX [Concomitant]
     Route: 048
     Dates: start: 20051223

REACTIONS (4)
  - DRUG DOSE OMISSION [None]
  - DYSARTHRIA [None]
  - DYSGRAPHIA [None]
  - SPEECH DISORDER [None]
